FAERS Safety Report 21124731 (Version 2)
Quarter: 2022Q4

REPORT INFORMATION
  Report Type: Report from Study
  Country: MA (occurrence: MA)
  Receive Date: 20220725
  Receipt Date: 20221222
  Transmission Date: 20230113
  Serious: Yes (Death, Hospitalization)
  Sender: FDA-Public Use
  Company Number: MA-NOVARTISPH-NVSC2022MA166479

PATIENT
  Sex: Female

DRUGS (1)
  1. AFINITOR [Suspect]
     Active Substance: EVEROLIMUS
     Indication: Breast cancer
     Dosage: 5 MG, BID
     Route: 048
     Dates: start: 20220520

REACTIONS (3)
  - Metastases to lung [Fatal]
  - Lower limb fracture [Unknown]
  - Condition aggravated [Unknown]
